FAERS Safety Report 18113157 (Version 3)
Quarter: 2020Q4

REPORT INFORMATION
  Report Type: Spontaneous
  Country: JP (occurrence: JP)
  Receive Date: 20200805
  Receipt Date: 20201016
  Transmission Date: 20210113
  Serious: Yes (Other)
  Sender: FDA-Public Use
  Company Number: JP-ASTRAZENECA-2020SE96550

PATIENT
  Age: 62 Year
  Sex: Female

DRUGS (4)
  1. LYNPARZA [Suspect]
     Active Substance: OLAPARIB
     Indication: OVARIAN CANCER RECURRENT
     Route: 048
     Dates: start: 20200409
  2. FP [Concomitant]
     Active Substance: SELEGILINE HYDROCHLORIDE
  3. DOPACOL [Concomitant]
     Active Substance: CARBIDOPA\LEVODOPA
  4. SYMMETREL [Concomitant]
     Active Substance: AMANTADINE HYDROCHLORIDE

REACTIONS (1)
  - Gastric cancer [Recovered/Resolved]

NARRATIVE: CASE EVENT DATE: 20200709
